FAERS Safety Report 24808466 (Version 2)
Quarter: 2025Q1

REPORT INFORMATION
  Report Type: Spontaneous
  Country: US (occurrence: US)
  Receive Date: 20250106
  Receipt Date: 20250110
  Transmission Date: 20250409
  Serious: No
  Sender: AMGEN
  Company Number: US-AMGEN-USASP2025000429

PATIENT
  Age: 83 Year
  Sex: Female
  Weight: 51.75 kg

DRUGS (6)
  1. PROLIA [Suspect]
     Active Substance: DENOSUMAB
     Indication: Osteoporosis
     Dosage: UNK, Q6MO (INJECTION IN LEFT ARM)
     Route: 065
  2. ATORVASTATIN [Concomitant]
     Active Substance: ATORVASTATIN
  3. AMLODIPINE [Concomitant]
     Active Substance: AMLODIPINE BESYLATE
  4. VITAMIN D [Concomitant]
     Active Substance: VITAMIN D NOS
  5. CALCIUM [Concomitant]
     Active Substance: CALCIUM
  6. COLLAGEN [Concomitant]
     Active Substance: COLLAGEN

REACTIONS (7)
  - Osteopenia [Unknown]
  - Pain [Unknown]
  - Bone pain [Unknown]
  - Groin pain [Unknown]
  - Arthralgia [Unknown]
  - Gait disturbance [Unknown]
  - Loss of personal independence in daily activities [Unknown]

NARRATIVE: CASE EVENT DATE: 20240801
